FAERS Safety Report 18484188 (Version 1)
Quarter: 2020Q4

REPORT INFORMATION
  Report Type: Spontaneous
  Country: US (occurrence: US)
  Receive Date: 20201109
  Receipt Date: 20201109
  Transmission Date: 20210114
  Serious: No
  Sender: FDA-Public Use
  Company Number: US-PURDUE-USA-2020-0154461

PATIENT
  Age: 35 Year

DRUGS (1)
  1. OXYCODONE HYDROCHLORIDE. [Suspect]
     Active Substance: OXYCODONE HYDROCHLORIDE
     Indication: NEURALGIA
     Dosage: 20 MG, UNK
     Route: 048

REACTIONS (2)
  - Pain [Unknown]
  - Product quality issue [Unknown]
